FAERS Safety Report 7314037-6 (Version None)
Quarter: 2011Q1

REPORT INFORMATION
  Report Type: 
  Country: None (occurrence: None)
  Receive Date: 20110218
  Receipt Date: 20110218
  Transmission Date: 20110831
  Serious: Yes (Hospitalization)
  Sender: FDA-Public Use
  Company Number: None

PATIENT
  Age: 53 Year
  Sex: Male
  Weight: 100.92 kg

DRUGS (1)
  1. HEPARIN [Suspect]
     Dosage: 300 IU TID IV
     Route: 042
     Dates: start: 20101216, end: 20101222

REACTIONS (1)
  - FULL BLOOD COUNT ABNORMAL [None]
